FAERS Safety Report 7480012-4 (Version None)
Quarter: 2011Q2

REPORT INFORMATION
  Report Type: 
  Country: None (occurrence: None)
  Receive Date: 20110516
  Receipt Date: 20110505
  Transmission Date: 20111010
  Serious: No
  Sender: FDA-Public Use
  Company Number: US-BIOGENIDEC-2009BI005549

PATIENT
  Sex: Female

DRUGS (4)
  1. AVONEX [Concomitant]
     Indication: MULTIPLE SCLEROSIS
     Route: 030
  2. AVONEX [Concomitant]
     Route: 030
  3. TYSABRI [Suspect]
     Indication: MULTIPLE SCLEROSIS
     Route: 042
     Dates: start: 20071218, end: 20080311
  4. TYSABRI [Suspect]
     Route: 042
     Dates: start: 20090108

REACTIONS (15)
  - DEPRESSION [None]
  - MULTIPLE SCLEROSIS RELAPSE [None]
  - FATIGUE [None]
  - INTERVERTEBRAL DISC PROTRUSION [None]
  - BLADDER DISORDER [None]
  - SPINAL COLUMN STENOSIS [None]
  - BACK PAIN [None]
  - MUSCLE DISORDER [None]
  - DRUG INEFFECTIVE [None]
  - GAIT DISTURBANCE [None]
  - ABASIA [None]
  - ASTHENIA [None]
  - PERONEAL NERVE PALSY [None]
  - STRESS [None]
  - MUSCULOSKELETAL DISORDER [None]
